FAERS Safety Report 8233827-9 (Version None)
Quarter: 2012Q1

REPORT INFORMATION
  Report Type: 
  Country: None (occurrence: None)
  Receive Date: 20120326
  Receipt Date: 20120316
  Transmission Date: 20120608
  Serious: Yes (Other)
  Sender: FDA-Public Use
  Company Number: JP-ASTELLAS-2012JP002510

PATIENT
  Age: 67 Year
  Sex: Female

DRUGS (8)
  1. LASIX [Concomitant]
     Dosage: UNK
     Route: 065
  2. PREDNISOLONE [Concomitant]
     Dosage: 10 MG, UNKNOWN/D
     Route: 048
  3. PROGRAF [Suspect]
     Indication: RHEUMATOID ARTHRITIS
     Dosage: 1 MG, UNKNOWN/D
     Route: 048
  4. PROGRAF [Suspect]
     Dosage: 2 MG, UNKNOWN/D
     Route: 048
  5. MARZULENE-S [Concomitant]
     Dosage: UNK
     Route: 048
  6. PROGRAF [Suspect]
     Dosage: 3 MG, UNKNOWN/D
     Route: 048
     Dates: start: 20110501
  7. AZULFIDINE [Concomitant]
     Dosage: 1 G, UNKNOWN/D
     Route: 048
  8. SINGULAIR [Concomitant]
     Dosage: UNK
     Route: 065

REACTIONS (1)
  - RHEUMATOID ARTHRITIS [None]
